FAERS Safety Report 5707545-2 (Version None)
Quarter: 2008Q2

REPORT INFORMATION
  Report Type: 
  Country: None (occurrence: None)
  Receive Date: 20080411
  Receipt Date: 20070306
  Transmission Date: 20081010
  Serious: Yes (Other)
  Sender: FDA-Public Use
  Company Number: 8018659

PATIENT
  Age: 14 Year
  Sex: Male

DRUGS (4)
  1. METADATE CD [Suspect]
     Indication: ATTENTION DEFICIT/HYPERACTIVITY DISORDER
     Dosage: 20 MG /D PO
     Route: 048
     Dates: start: 20030718, end: 20030801
  2. METADATE CD [Suspect]
     Indication: ATTENTION DEFICIT/HYPERACTIVITY DISORDER
     Dosage: 30 MG /D PO
     Route: 048
     Dates: start: 20030801, end: 20041001
  3. METADATE CD [Suspect]
     Indication: ATTENTION DEFICIT/HYPERACTIVITY DISORDER
     Dosage: 20 MG 2/D PO
     Route: 048
     Dates: start: 20041004, end: 20060921
  4. CATAPRES [Concomitant]

REACTIONS (1)
  - CONVULSION [None]
